FAERS Safety Report 24210644 (Version 1)
Quarter: 2024Q3

REPORT INFORMATION
  Report Type: Spontaneous
  Country: ES (occurrence: ES)
  Receive Date: 20240814
  Receipt Date: 20240814
  Transmission Date: 20241017
  Serious: Yes (Other)
  Sender: OTSUKA
  Company Number: ES-OTSUKA-2024_022110

PATIENT
  Age: 53 Year
  Sex: Male

DRUGS (1)
  1. ABILIFY MAINTENA [Suspect]
     Active Substance: ARIPIPRAZOLE
     Indication: Schizophrenia
     Dosage: 400 MG
     Route: 065

REACTIONS (2)
  - Narcolepsy [Not Recovered/Not Resolved]
  - Tinnitus [Not Recovered/Not Resolved]
